FAERS Safety Report 19256026 (Version 2)
Quarter: 2021Q2

REPORT INFORMATION
  Report Type: Spontaneous
  Country: AU (occurrence: AU)
  Receive Date: 20210513
  Receipt Date: 20210623
  Transmission Date: 20210717
  Serious: No
  Sender: FDA-Public Use
  Company Number: AU-JNJFOC-20210503600

PATIENT
  Sex: Male

DRUGS (3)
  1. DUROGESIC [Suspect]
     Active Substance: FENTANYL
  2. DUROGESIC [Suspect]
     Active Substance: FENTANYL
     Indication: PRODUCT USED FOR UNKNOWN INDICATION
     Dosage: BATCH NUMBER ON PATCH : JBB1800 /01/2021?75.00 MCG/HR
     Route: 062
  3. DUROGESIC [Suspect]
     Active Substance: FENTANYL
     Route: 062

REACTIONS (4)
  - Somnolence [Recovering/Resolving]
  - Dizziness [Recovering/Resolving]
  - Expired product administered [Unknown]
  - Product label issue [Unknown]
